FAERS Safety Report 12600596 (Version 1)
Quarter: 2016Q3

REPORT INFORMATION
  Report Type: Spontaneous
  Country: CA (occurrence: CA)
  Receive Date: 20160727
  Receipt Date: 20160727
  Transmission Date: 20161109
  Serious: Yes (Hospitalization, Other)
  Sender: FDA-Public Use
  Company Number: CA-HQ SPECIALTY-CA-2016INT000626

PATIENT
  Age: 47 Year
  Sex: Female

DRUGS (9)
  1. METHOTREXATE SODIUM. [Suspect]
     Active Substance: METHOTREXATE SODIUM
     Indication: PRODUCT USED FOR UNKNOWN INDICATION
     Dosage: UNK
  2. ENBREL [Suspect]
     Active Substance: ETANERCEPT
     Dosage: 7.1429 MG, (25 MG,2 IN 1 W)
     Route: 058
     Dates: start: 200510, end: 20051014
  3. PREVACID [Concomitant]
     Active Substance: LANSOPRAZOLE
     Indication: PRODUCT USED FOR UNKNOWN INDICATION
     Dosage: UNK
  4. PREDNISONE. [Concomitant]
     Active Substance: PREDNISONE
     Indication: PRODUCT USED FOR UNKNOWN INDICATION
     Dosage: UNK
  5. NADOLOL. [Concomitant]
     Active Substance: NADOLOL
     Indication: PRODUCT USED FOR UNKNOWN INDICATION
     Dosage: UNK
  6. ENBREL [Suspect]
     Active Substance: ETANERCEPT
     Dosage: 7.1429 MG, (25 MG,2 IN 1 W)
     Route: 058
     Dates: start: 200509, end: 200510
  7. SULFASALAZINE. [Concomitant]
     Active Substance: SULFASALAZINE
     Indication: PRODUCT USED FOR UNKNOWN INDICATION
     Dosage: UNK
  8. ENBREL [Suspect]
     Active Substance: ETANERCEPT
     Indication: RHEUMATOID ARTHRITIS
     Dosage: 7.1429 MG, (25 MG,2 IN 1 W)
     Route: 058
     Dates: start: 20030429, end: 200509
  9. MEDROL [Concomitant]
     Active Substance: METHYLPREDNISOLONE
     Indication: PRODUCT USED FOR UNKNOWN INDICATION
     Dosage: UNK
     Dates: start: 1996

REACTIONS (14)
  - Extensor plantar response [Not Recovered/Not Resolved]
  - Myelitis [Not Recovered/Not Resolved]
  - Hypoaesthesia [Not Recovered/Not Resolved]
  - Urinary tract infection [Not Recovered/Not Resolved]
  - Paraplegia [Not Recovered/Not Resolved]
  - Inflammation [Not Recovered/Not Resolved]
  - Muscle spasms [Not Recovered/Not Resolved]
  - Neuropathy peripheral [Not Recovered/Not Resolved]
  - Paraesthesia [Not Recovered/Not Resolved]
  - Upper respiratory tract infection [Not Recovered/Not Resolved]
  - Breast pain [Not Recovered/Not Resolved]
  - Myelopathy [Not Recovered/Not Resolved]
  - Gastrointestinal motility disorder [Not Recovered/Not Resolved]
  - Bladder disorder [Not Recovered/Not Resolved]

NARRATIVE: CASE EVENT DATE: 200509
